FAERS Safety Report 9659797 (Version 1)
Quarter: 2013Q4

REPORT INFORMATION
  Report Type: Spontaneous
  Country: US (occurrence: US)
  Receive Date: 20131031
  Receipt Date: 20131031
  Transmission Date: 20140711
  Serious: No
  Sender: FDA-Public Use
  Company Number: US-PFIZER INC-2013310573

PATIENT
  Age: 72 Year
  Sex: Male

DRUGS (2)
  1. INLYTA [Suspect]
     Indication: METASTASIS
     Dosage: 5 MG, UNK
     Dates: start: 20130517
  2. INLYTA [Suspect]
     Indication: METASTASES TO LIVER

REACTIONS (2)
  - Nail disorder [Unknown]
  - Alopecia [Unknown]
